FAERS Safety Report 7605493-4 (Version None)
Quarter: 2011Q3

REPORT INFORMATION
  Report Type: 
  Country: None (occurrence: None)
  Receive Date: 20110705
  Receipt Date: 20110620
  Transmission Date: 20111222
  Serious: Yes (Other)
  Sender: FDA-Public Use
  Company Number: THQ2011A03124

PATIENT
  Age: 45 Year
  Sex: Female

DRUGS (2)
  1. ANTIHYPERTENSIVES (UNSPECIFIED) (ANTIHYPERTENSIVES) [Concomitant]
  2. COMPETACT (PIOGLITAZONE HYDROCHLORIDE, METFORMIN HYDROCHLORIDE) [Suspect]
     Indication: DIABETES MELLITUS
     Dosage: 850 MG, 2 IN 1 D, PER ORAL
     Route: 048
     Dates: start: 20110530, end: 20110601

REACTIONS (1)
  - HYPERSENSITIVITY [None]
